FAERS Safety Report 4863941-7 (Version None)
Quarter: 2005Q4

REPORT INFORMATION
  Report Type: 
  Country: None (occurrence: None)
  Receive Date: 20051219
  Receipt Date: 20051207
  Transmission Date: 20060501
  Serious: Yes (Hospitalization)
  Sender: FDA-Public Use
  Company Number: 2005-133891-NL

PATIENT
  Age: 43 Year
  Sex: Male

DRUGS (14)
  1. MIRTAZAPINE [Suspect]
     Dosage: DF
  2. VALPROATE SODIUM [Concomitant]
  3. PROCYCLIDINE HYDROCHLORIDE 2MG TAB [Concomitant]
  4. ZUCLOPENTHIXOL [Concomitant]
  5. LACTULOSE [Concomitant]
  6. HYDROXYZINE [Concomitant]
  7. FOLIC ACID [Concomitant]
  8. LANSOPRAZOLE [Concomitant]
  9. SENNA [Concomitant]
  10. FERROUS SULFATE TAB [Concomitant]
  11. MOVICOL [Concomitant]
  12. BISMUTH SUBSALICYLATE [Concomitant]
  13. PARACETAMOL [Concomitant]
  14. DIAZEPAM [Concomitant]

REACTIONS (2)
  - ANAEMIA [None]
  - PEPTIC ULCER HAEMORRHAGE [None]
